FAERS Safety Report 6103498-6 (Version None)
Quarter: 2009Q1

REPORT INFORMATION
  Report Type: 
  Country: None (occurrence: None)
  Receive Date: 20090305
  Receipt Date: 20090223
  Transmission Date: 20090719
  Serious: Yes (Death, Other)
  Sender: FDA-Public Use
  Company Number: US-BAXTER-2009BH002971

PATIENT
  Sex: Female

DRUGS (1)
  1. HEPARIN SODIUM INJECTION [Suspect]
     Indication: DEEP VEIN THROMBOSIS
     Route: 065
     Dates: start: 20080201

REACTIONS (6)
  - ANOREXIA [None]
  - BALANCE DISORDER [None]
  - DEATH [None]
  - HYPOTENSION [None]
  - ORGAN FAILURE [None]
  - UNRESPONSIVE TO STIMULI [None]
